FAERS Safety Report 8559937 (Version 3)
Quarter: 2012Q4

REPORT INFORMATION
  Report Type: 
  Country: US (occurrence: US)
  Receive Date: 20120514
  Receipt Date: 20120917
  Transmission Date: 20130627
  Serious: Yes (Hospitalization, Other)
  Sender: FDA-Public Use
  Company Number: US-PFIZER INC-2012115738

PATIENT
  Age: 83 Year
  Sex: Female

DRUGS (5)
  1. INLYTA [Suspect]
     Indication: RENAL CELL CARCINOMA
     Dosage: 5 mg, 2x/day
     Route: 048
     Dates: start: 201204, end: 201205
  2. INLYTA [Suspect]
     Dosage: 5 mg, 2x/day
     Route: 048
     Dates: start: 20120507, end: 20120511
  3. MS CONTIN [Concomitant]
     Indication: METASTASES TO BONE
     Dosage: UNK
  4. ZOMETA [Concomitant]
     Indication: METASTASES TO BONE
     Dosage: UNK
  5. DILAUDID [Concomitant]
     Indication: METASTASES TO BONE
     Dosage: UNK

REACTIONS (2)
  - Convulsion [Recovered/Resolved]
  - Loss of consciousness [Recovered/Resolved]
